FAERS Safety Report 4283677-3 (Version None)
Quarter: 2004Q1

REPORT INFORMATION
  Report Type: 
  Country: None (occurrence: None)
  Receive Date: 20040202
  Receipt Date: 20031024
  Transmission Date: 20041129
  Serious: Yes (Disabling)
  Sender: FDA-Public Use
  Company Number: US-ROCHE-350118

PATIENT
  Age: 61 Year
  Sex: Male
  Weight: 68 kg

DRUGS (2)
  1. PEGASYS [Suspect]
     Indication: HEPATITIS C
     Route: 058
     Dates: start: 20031010, end: 20031018
  2. COPEGUS [Concomitant]
     Indication: HEPATITIS C
     Route: 048
     Dates: start: 20031010, end: 20031018

REACTIONS (9)
  - BLOOD BILIRUBIN INCREASED [None]
  - BONE MARROW DEPRESSION [None]
  - DIARRHOEA [None]
  - DIZZINESS [None]
  - FATIGUE [None]
  - HEPATIC ENZYME INCREASED [None]
  - HYPERBILIRUBINAEMIA [None]
  - INFLUENZA LIKE ILLNESS [None]
  - SYNCOPE [None]
